FAERS Safety Report 20966361 (Version 1)
Quarter: 2022Q2

REPORT INFORMATION
  Report Type: Spontaneous
  Country: FR (occurrence: FR)
  Receive Date: 20220616
  Receipt Date: 20220616
  Transmission Date: 20220721
  Serious: Yes (Hospitalization)
  Sender: FDA-Public Use
  Company Number: None

PATIENT
  Age: 47 Year
  Sex: Male

DRUGS (4)
  1. ARIPIPRAZOLE [Suspect]
     Active Substance: ARIPIPRAZOLE
     Indication: Bipolar disorder
     Dosage: UNIT DOSE : 20 MG , FREQUENCY TIME : 1 DAY
     Route: 048
     Dates: end: 20220425
  2. LORMETAZEPAM [Suspect]
     Active Substance: LORMETAZEPAM
     Indication: Bipolar disorder
     Dosage: UNIT DOSE : 2 MG , FREQUENCY TIME : 1 DAY
     Route: 048
     Dates: end: 20220425
  3. DEPAKOTE [Suspect]
     Active Substance: DIVALPROEX SODIUM
     Indication: Bipolar disorder
     Dosage: STRENGTH : 500 MG , UNIT DOSE : 1500 MG , FREQUENCY TIME : 1 DAY
  4. LEVOMEPROMAZINE [Suspect]
     Active Substance: LEVOMEPROMAZINE
     Indication: Bipolar disorder
     Dosage: SCORED FILM-COATED TABLET , STRENGTH : 25 MG , UNIT DOSE : 25 MG , FREQUENCY TIME : 1 DAY
     Route: 048
     Dates: end: 20220424

REACTIONS (1)
  - Ischaemic stroke [Recovered/Resolved with Sequelae]

NARRATIVE: CASE EVENT DATE: 20220424
